FAERS Safety Report 18899891 (Version 1)
Quarter: 2021Q1

REPORT INFORMATION
  Report Type: Spontaneous
  Country: FR (occurrence: FR)
  Receive Date: 20210216
  Receipt Date: 20210216
  Transmission Date: 20210420
  Serious: Yes (Other)
  Sender: FDA-Public Use
  Company Number: FR-PFIZER INC-2021134171

PATIENT
  Age: 73 Year
  Sex: Female
  Weight: 50 kg

DRUGS (7)
  1. IRINOTECAN MEDAC [Suspect]
     Active Substance: IRINOTECAN
     Indication: ADENOCARCINOMA PANCREAS
     Dosage: 180 MG/M2, CYCLIC
     Route: 042
     Dates: start: 20201028, end: 20210127
  2. ZOPHREN [ONDANSETRON HYDROCHLORIDE] [Suspect]
     Active Substance: ONDANSETRON
     Indication: PROPHYLAXIS OF NAUSEA AND VOMITING
     Dosage: 8 MG, CYCLIC
     Route: 042
     Dates: start: 20201028, end: 20210127
  3. EMEND [Suspect]
     Active Substance: APREPITANT
     Indication: PROPHYLAXIS OF NAUSEA AND VOMITING
     Dosage: 125 MG, CYCLIC
     Route: 048
     Dates: start: 20201028, end: 20210127
  4. FLUOROURACILE PFIZER [Suspect]
     Active Substance: FLUOROURACIL
     Indication: ADENOCARCINOMA PANCREAS
     Dosage: 625 MG, CYCLIC
     Route: 042
     Dates: start: 20201028, end: 20210127
  5. OXALIPLATINE ACCORD [Suspect]
     Active Substance: OXALIPLATIN
     Indication: ADENOCARCINOMA PANCREAS
     Dosage: 85 MG/M2, CYCLIC
     Route: 042
     Dates: start: 20201028, end: 20210127
  6. CALCIUM LEVOFOLINATE ZENTIVA [Suspect]
     Active Substance: LEVOLEUCOVORIN CALCIUM
     Indication: ADENOCARCINOMA PANCREAS
     Dosage: 200 MG/M2, CYCLIC
     Route: 042
     Dates: start: 20201028, end: 20210127
  7. SOLU?MEDROL [Suspect]
     Active Substance: METHYLPREDNISOLONE SODIUM SUCCINATE
     Indication: PROPHYLAXIS OF NAUSEA AND VOMITING
     Dosage: 120 MG, CYCLIC
     Route: 042
     Dates: start: 20201028, end: 20210127

REACTIONS (2)
  - Oropharyngeal discomfort [Recovered/Resolved]
  - Dysphagia [Recovered/Resolved]

NARRATIVE: CASE EVENT DATE: 20210127
